FAERS Safety Report 9004531 (Version 1)
Quarter: 2013Q1

REPORT INFORMATION
  Report Type: Report from Study
  Country: US (occurrence: US)
  Receive Date: 20130108
  Receipt Date: 20130108
  Transmission Date: 20140127
  Serious: Yes (Disabling)
  Sender: FDA-Public Use
  Company Number: US-ASTRAZENECA-2013SE00528

PATIENT
  Age: 62 Year
  Sex: Male
  Weight: 108.9 kg

DRUGS (12)
  1. NEXIUM [Suspect]
     Indication: GASTROOESOPHAGEAL REFLUX DISEASE
     Route: 048
  2. NEXIUM [Suspect]
     Indication: GASTROOESOPHAGEAL REFLUX DISEASE
     Route: 048
  3. BABY ASPIRIN [Concomitant]
     Indication: CARDIAC DISORDER
     Route: 048
  4. LIPITOR [Concomitant]
     Indication: BLOOD CHOLESTEROL ABNORMAL
     Route: 048
  5. DIOVAN [Concomitant]
     Indication: NERVOUS SYSTEM DISORDER
     Route: 048
  6. EFFIENT [Concomitant]
     Indication: ANTICOAGULANT THERAPY
     Route: 048
  7. ISOSORB MONO [Concomitant]
     Route: 048
  8. CITALOPRAM [Concomitant]
     Route: 048
  9. CLONAZEPAM [Concomitant]
     Indication: SLEEP DISORDER
     Route: 048
  10. CARBEDILOL [Concomitant]
     Route: 048
  11. NTG [Concomitant]
     Indication: CHEST PAIN
     Route: 048
  12. GLIMEPIRIDE [Concomitant]

REACTIONS (3)
  - Cardiac disorder [Unknown]
  - Chest pain [Unknown]
  - Headache [Unknown]
